FAERS Safety Report 7967310-2 (Version None)
Quarter: 2011Q4

REPORT INFORMATION
  Report Type: 
  Country: None (occurrence: None)
  Receive Date: 20111209
  Receipt Date: 20111201
  Transmission Date: 20120403
  Serious: Yes (Other)
  Sender: FDA-Public Use
  Company Number: AU-JNJFOC-20111201204

PATIENT
  Age: 2 Year
  Sex: Male

DRUGS (1)
  1. TOPAMAX [Suspect]
     Indication: CONVULSION
     Route: 048

REACTIONS (1)
  - GASTROINTESTINAL TUBE INSERTION [None]
